FAERS Safety Report 10290768 (Version 1)
Quarter: 2014Q3

REPORT INFORMATION
  Report Type: Spontaneous
  Country: GB (occurrence: None)
  Receive Date: 20140708
  Receipt Date: 20140708
  Transmission Date: 20150326
  Serious: Yes (Disabling, Other)
  Sender: FDA-Public Use
  Company Number: AUR-APL-2014-07052

PATIENT
  Age: 89 Year
  Sex: Female
  Weight: 60 kg

DRUGS (8)
  1. ANASTROZOLE ( ANASTROZOLE) [Concomitant]
  2. DOXAZOSIN ( DOXAZOSIN) [Concomitant]
  3. ALENDRONIC ACID 70 (ALENDRONIC ACID) UNKNOWN, 70 MG [Suspect]
     Active Substance: ALENDRONIC ACID
     Indication: OSTEOPOROSIS
     Dosage: 70 MG, UNK, ORAL
     Route: 048
     Dates: start: 20140603, end: 20140616
  4. ASPIRIN ( ACETYLSALICYLIC ACID) [Concomitant]
  5. LISINOPRIL ( LISINOPRIL) [Concomitant]
  6. ADCAL D3 ( CALCIUM CARBONATE, COLECALCIFEROL) [Concomitant]
  7. LANSOPRAZOLE ( LANSOPRAZOLE) [Concomitant]
  8. SIMVASTATIN ( SIMVASTATIN) [Concomitant]

REACTIONS (7)
  - Lupus-like syndrome [None]
  - Tenderness [None]
  - Joint effusion [None]
  - Joint warmth [None]
  - Synovial disorder [None]
  - Joint swelling [None]
  - Polyarthritis [None]

NARRATIVE: CASE EVENT DATE: 20140603
